FAERS Safety Report 25183199 (Version 1)
Quarter: 2025Q2

REPORT INFORMATION
  Report Type: Spontaneous
  Country: US (occurrence: US)
  Receive Date: 20250410
  Receipt Date: 20250410
  Transmission Date: 20250716
  Serious: Yes (Other)
  Sender: UROGEN PHARMA
  Company Number: US-UROGEN PHARMA LTD.-2025-UGN-000019

PATIENT

DRUGS (4)
  1. JELMYTO [Suspect]
     Active Substance: MITOMYCIN
     Indication: Product used for unknown indication
     Route: 065
  2. JELMYTO [Suspect]
     Active Substance: MITOMYCIN
     Route: 065
  3. JELMYTO [Suspect]
     Active Substance: MITOMYCIN
     Route: 065
  4. JELMYTO [Suspect]
     Active Substance: MITOMYCIN
     Route: 065

REACTIONS (2)
  - Ureteric stenosis [Unknown]
  - Neoplasm progression [Unknown]
